FAERS Safety Report 6256135-4 (Version None)
Quarter: 2009Q3

REPORT INFORMATION
  Report Type: 
  Country: None (occurrence: None)
  Receive Date: 20090706
  Receipt Date: 20090623
  Transmission Date: 20100115
  Serious: Yes (Hospitalization, Other)
  Sender: FDA-Public Use
  Company Number: PHHY2009NL24671

PATIENT
  Age: 66 Year
  Sex: Male

DRUGS (2)
  1. CARBAMAZEPINE [Suspect]
     Indication: EPILEPSY
  2. LEVETIRACETAM [Concomitant]
     Indication: EPILEPSY

REACTIONS (4)
  - BRONCHIAL CARCINOMA [None]
  - CONDITION AGGRAVATED [None]
  - GRAND MAL CONVULSION [None]
  - PARTIAL SEIZURES [None]
